FAERS Safety Report 18695832 (Version 1)
Quarter: 2021Q1

REPORT INFORMATION
  Report Type: Spontaneous
  Country: US (occurrence: US)
  Receive Date: 20210104
  Receipt Date: 20210104
  Transmission Date: 20210419
  Serious: Yes (Hospitalization)
  Sender: FDA-Public Use
  Company Number: None

PATIENT
  Sex: Female

DRUGS (10)
  1. VITAMIN B12 [Concomitant]
     Active Substance: CYANOCOBALAMIN
     Dates: start: 20181108
  2. CALCIUM/D [Concomitant]
     Dates: start: 20181108
  3. VITAMIN D3 [Concomitant]
     Active Substance: CHOLECALCIFEROL
     Dates: start: 20181108
  4. CARVEDILOL. [Concomitant]
     Active Substance: CARVEDILOL
     Dates: start: 20181108
  5. ASPIRIN. [Concomitant]
     Active Substance: ASPIRIN
     Dates: start: 20181108
  6. ENOXAPARIN [Concomitant]
     Active Substance: ENOXAPARIN
     Dates: start: 20201231
  7. IRON [Concomitant]
     Active Substance: IRON
     Dates: start: 20181108
  8. HUMIRA [Suspect]
     Active Substance: ADALIMUMAB
     Indication: PSORIASIS
     Dosage: ?          OTHER FREQUENCY:EVERY 2 WEEKS;?
     Route: 058
     Dates: start: 20200826
  9. ATORVASTATIN [Concomitant]
     Active Substance: ATORVASTATIN
     Dates: start: 20181108
  10. MULTIVITAMIN [Concomitant]
     Active Substance: VITAMINS
     Dates: start: 20181108

REACTIONS (2)
  - Therapy interrupted [None]
  - Hip fracture [None]
